FAERS Safety Report 10767712 (Version 1)
Quarter: 2015Q1

REPORT INFORMATION
  Report Type: Report from Study
  Country: ES (occurrence: ES)
  Receive Date: 20150205
  Receipt Date: 20150205
  Transmission Date: 20150721
  Serious: Yes (Hospitalization)
  Sender: FDA-Public Use
  Company Number: ES-ABBVIE-15P-144-1340845-00

PATIENT
  Age: 1 Year
  Sex: Female

DRUGS (4)
  1. SYNAGIS [Suspect]
     Active Substance: PALIVIZUMAB
     Dosage: 4TH DOSE
     Route: 065
     Dates: start: 20150112
  2. SYNAGIS [Suspect]
     Active Substance: PALIVIZUMAB
     Indication: ANTIVIRAL PROPHYLAXIS
     Dosage: 1SY DOSE
     Route: 065
     Dates: start: 20141013
  3. SYNAGIS [Suspect]
     Active Substance: PALIVIZUMAB
     Dosage: 2ND DOSE
     Route: 065
     Dates: start: 20141110
  4. SYNAGIS [Suspect]
     Active Substance: PALIVIZUMAB
     Dosage: 3RD DOSE
     Route: 065
     Dates: start: 20141215

REACTIONS (2)
  - Bronchiolitis [Unknown]
  - Pneumonia [Unknown]

NARRATIVE: CASE EVENT DATE: 201501
